FAERS Safety Report 4946777-8 (Version None)
Quarter: 2006Q1

REPORT INFORMATION
  Report Type: 
  Country: None (occurrence: None)
  Receive Date: 20060317
  Receipt Date: 20060316
  Transmission Date: 20060701
  Serious: Yes (Hospitalization)
  Sender: FDA-Public Use
  Company Number: US-GLAXOSMITHKLINE-A0597787A

PATIENT
  Age: 70 Year
  Sex: Female

DRUGS (8)
  1. COMMIT [Suspect]
     Indication: SMOKING CESSATION THERAPY
  2. EFFEXOR [Concomitant]
  3. NEURONTIN [Concomitant]
  4. LORAZEPAM [Concomitant]
  5. FORTEO [Concomitant]
  6. HYDROCODONE [Concomitant]
  7. CALCIUM GLUCONATE [Concomitant]
  8. MULTI-VITAMIN [Concomitant]

REACTIONS (5)
  - DYSPNOEA [None]
  - EMPHYSEMA [None]
  - INTENTIONAL DRUG MISUSE [None]
  - OXYGEN SATURATION DECREASED [None]
  - RESPIRATORY TRACT INFECTION VIRAL [None]
